FAERS Safety Report 15918756 (Version 2)
Quarter: 2019Q4

REPORT INFORMATION
  Report Type: Spontaneous
  Country: FR (occurrence: FR)
  Receive Date: 20190205
  Receipt Date: 20191025
  Transmission Date: 20200122
  Serious: Yes (Disabling, Other)
  Sender: FDA-Public Use
  Company Number: FR-PFIZER INC-FRWYE377609FEB06

PATIENT
  Age: 64 Year
  Sex: Male
  Weight: 76 kg

DRUGS (15)
  1. TEGRETOL [Concomitant]
     Active Substance: CARBAMAZEPINE
     Dosage: 1000 MG, DAILY
  2. MOPRAL [OMEPRAZOLE MAGNESIUM] [Concomitant]
     Active Substance: OMEPRAZOLE MAGNESIUM
     Dosage: 20 MG, 1X/DAY
  3. HALDOL [Concomitant]
     Active Substance: HALOPERIDOL
     Dosage: 5 MG, 1X/DAY
     Route: 048
  4. SOLU-MEDROL [Concomitant]
     Active Substance: METHYLPREDNISOLONE SODIUM SUCCINATE
     Dosage: UNK
  5. TAZOCILLINE [Suspect]
     Active Substance: PIPERACILLIN SODIUM\TAZOBACTAM SODIUM
     Indication: PROCTITIS ULCERATIVE
     Dosage: 4 G, 2X/DAY
     Route: 042
     Dates: start: 20050708, end: 20050723
  6. CIFLOX [CIPROFLOXACIN] [Suspect]
     Active Substance: CIPROFLOXACIN
     Indication: PROCTITIS ULCERATIVE
     Dosage: 500 MG, 1X/DAY
     Route: 048
     Dates: start: 20050708, end: 20050723
  7. FLAGYL [Suspect]
     Active Substance: METRONIDAZOLE\METRONIDAZOLE HYDROCHLORIDE
     Indication: STAPHYLOCOCCAL BACTERAEMIA
     Dosage: 1000 MG, DAILY
     Route: 048
     Dates: start: 20050725, end: 20050809
  8. MEPRONIZINE [ACEPROMETAZINE MALEATE;MEPROBAMATE] [Concomitant]
     Dosage: UNK
  9. TAZOCILLINE [Suspect]
     Active Substance: PIPERACILLIN SODIUM\TAZOBACTAM SODIUM
     Indication: STAPHYLOCOCCAL BACTERAEMIA
  10. CIFLOX [CIPROFLOXACIN] [Suspect]
     Active Substance: CIPROFLOXACIN
     Indication: STAPHYLOCOCCAL BACTERAEMIA
  11. FLAGYL [Suspect]
     Active Substance: METRONIDAZOLE\METRONIDAZOLE HYDROCHLORIDE
     Dosage: UNK UNK, 1X/DAY
     Dates: start: 200508
  12. SECTRAL [Concomitant]
     Active Substance: ACEBUTOLOL HYDROCHLORIDE
     Dosage: 400 MG, DAILY
     Route: 048
  13. EUPRESSYL [URAPIDIL HYDROCHLORIDE] [Concomitant]
     Active Substance: URAPIDIL HYDROCHLORIDE
     Dosage: 120 MG, DAILY
     Route: 048
  14. ZOVIRAX [Concomitant]
     Active Substance: ACYCLOVIR
     Dosage: UNK
     Dates: start: 20050717
  15. AMLOR [Concomitant]
     Active Substance: AMLODIPINE BESYLATE
     Dosage: 10 MG, DAILY
     Route: 048

REACTIONS (5)
  - Pseudomembranous colitis [Recovered/Resolved with Sequelae]
  - Creatinine renal clearance increased [Unknown]
  - Blood urea increased [Unknown]
  - Septic shock [Recovered/Resolved with Sequelae]
  - Clostridium test positive [Unknown]

NARRATIVE: CASE EVENT DATE: 20050710
